FAERS Safety Report 9642619 (Version 2)
Quarter: 2014Q1

REPORT INFORMATION
  Report Type: Spontaneous
  Country: US (occurrence: US)
  Receive Date: 20131024
  Receipt Date: 20140319
  Transmission Date: 20141002
  Serious: No
  Sender: FDA-Public Use
  Company Number: US-PFIZER INC-2013302077

PATIENT
  Age: 70 Year
  Sex: Male

DRUGS (1)
  1. INLYTA [Suspect]
     Indication: MALIGNANT URINARY TRACT NEOPLASM
     Dosage: 1 MG - TAKE 3, 2X/DAY
     Route: 048
     Dates: start: 20130501

REACTIONS (5)
  - Fatigue [Unknown]
  - Diarrhoea [Unknown]
  - Dysphonia [Unknown]
  - Constipation [Unknown]
  - Palmar-plantar erythrodysaesthesia syndrome [Unknown]
